FAERS Safety Report 24584365 (Version 1)
Quarter: 2024Q4

REPORT INFORMATION
  Report Type: Spontaneous
  Country: US (occurrence: None)
  Receive Date: 20241105
  Receipt Date: 20241105
  Transmission Date: 20250115
  Serious: Yes (Hospitalization)
  Sender: Public
  Company Number: None

PATIENT
  Age: 62 Year
  Sex: Female
  Weight: 99.79 kg

DRUGS (5)
  1. METFORMIN HYDROCHLORIDE [Suspect]
     Active Substance: METFORMIN HYDROCHLORIDE
     Indication: Type 2 diabetes mellitus
     Dosage: OTHER QUANTITY : 1 TABLET;?FREQUENCY : TWICE A DAY;?
     Dates: start: 20240516, end: 20240617
  2. Irebesartan [Concomitant]
  3. BYSTOLIC [Concomitant]
  4. HERBAL NOS [Concomitant]
     Active Substance: HERBALS
  5. CALCIUM [Concomitant]
     Active Substance: CALCIUM

REACTIONS (4)
  - Vaginal haemorrhage [None]
  - Endometrial thickening [None]
  - Emotional distress [None]
  - Economic problem [None]

NARRATIVE: CASE EVENT DATE: 20240615
